FAERS Safety Report 12437945 (Version 1)
Quarter: 2016Q2

REPORT INFORMATION
  Report Type: Spontaneous
  Country: US (occurrence: None)
  Receive Date: 20160603
  Receipt Date: 20160603
  Transmission Date: 20160815
  Serious: No
  Sender: FDA-Public Use
  Company Number: None

PATIENT
  Age: 63 Year
  Sex: Male

DRUGS (1)
  1. BOTOX [Suspect]
     Active Substance: ONABOTULINUMTOXINA
     Indication: DYSTONIA
     Dosage: 300 UNITS EVERY 3 MONTHS INTRAMUSCULAR
     Route: 030
     Dates: start: 20160130

REACTIONS (2)
  - Neuralgia [None]
  - Muscle disorder [None]

NARRATIVE: CASE EVENT DATE: 20160131
